FAERS Safety Report 8902481 (Version 1)
Quarter: 2012Q4

REPORT INFORMATION
  Report Type: Report from Study
  Country: CH (occurrence: CH)
  Receive Date: 20121112
  Receipt Date: 20121112
  Transmission Date: 20130627
  Serious: Yes (Death, Life-Threatening, Other)
  Sender: FDA-Public Use
  Company Number: CH-CELGENEUS-151-50794-12110650

PATIENT

DRUGS (1)
  1. VIDAZA [Suspect]
     Indication: ACUTE MYELOID LEUKEMIA
     Route: 065

REACTIONS (140)
  - Leukaemia [Fatal]
  - Subdural haematoma [Fatal]
  - Pneumonitis [Fatal]
  - Respiratory failure [Fatal]
  - Appendicitis perforated [Fatal]
  - Neutrophil count [Fatal]
  - Lung infection [Fatal]
  - Pseudomonal sepsis [Fatal]
  - Pneumonia [Fatal]
  - Haematoma [Fatal]
  - Cardiac failure [Fatal]
  - Septic shock [Fatal]
  - Chloroma [Unknown]
  - Blood creatinine increased [Unknown]
  - Pancytopenia [Unknown]
  - Dermatitis allergic [Unknown]
  - Dyspnoea [Unknown]
  - Fatigue [Unknown]
  - Febrile neutropenia [Unknown]
  - Melaena [Unknown]
  - Agranulocytosis [Unknown]
  - Pseudomonas infection [Unknown]
  - Second primary malignancy [Unknown]
  - Skin lesion [Unknown]
  - Stomatitis [Unknown]
  - Ileal stenosis [Unknown]
  - Apraxia [Unknown]
  - Anal haemorrhage [Unknown]
  - Large intestinal haemorrhage [Unknown]
  - Rectal haemorrhage [Unknown]
  - Haemorrhage [Unknown]
  - Vaginal haemorrhage [Unknown]
  - Platelet count abnormal [Unknown]
  - Eye haemorrhage [Unknown]
  - White blood cell disorder [Unknown]
  - Epistaxis [Unknown]
  - Renal failure [Unknown]
  - Retinal detachment [Unknown]
  - Gastrointestinal fistula [Unknown]
  - Cerebral haemorrhage [Unknown]
  - Decubitus ulcer [Unknown]
  - Empyema [Unknown]
  - Uterine haemorrhage [Unknown]
  - Angina pectoris [Unknown]
  - Hyperglycaemia [Unknown]
  - Syncope [Unknown]
  - Emphysema [Unknown]
  - Transfusion reaction [Unknown]
  - Pleural effusion [Unknown]
  - Embolism [Unknown]
  - Acute myeloid leukaemia [Unknown]
  - Condition aggravated [Unknown]
  - Asthenia [Unknown]
  - Injection site pain [Unknown]
  - General physical health deterioration [Unknown]
  - Acute myeloid leukaemia [Unknown]
  - Pruritus [Unknown]
  - Pyrexia [Unknown]
  - Malaise [Unknown]
  - Haematotoxicity [Unknown]
  - General physical health deterioration [Unknown]
  - Infection [Unknown]
  - Blood alkaline phosphatase increased [Unknown]
  - Erythema [Unknown]
  - Decreased appetite [Unknown]
  - Ataxia [Unknown]
  - Petechiae [Unknown]
  - Confusional state [Unknown]
  - Constipation [Unknown]
  - General physical health deterioration [Unknown]
  - General physical health deterioration [Unknown]
  - Cough [Unknown]
  - Blood creatinine increased [Unknown]
  - Dehydration [Unknown]
  - Rash generalised [Unknown]
  - Infection [Unknown]
  - Injection site reaction [Unknown]
  - Axillary mass [Unknown]
  - Injection site erythema [Unknown]
  - Diarrhoea [Unknown]
  - Dizziness [Unknown]
  - Dysphagia [Unknown]
  - Oedema peripheral [Unknown]
  - Flatulence [Unknown]
  - Influenza [Unknown]
  - Fracture [Unknown]
  - Gamma-glutamyltransferase increased [Unknown]
  - Oral candidiasis [Unknown]
  - Dyspepsia [Unknown]
  - Haemoglobin [Unknown]
  - Hypokalaemia [Unknown]
  - Cystitis [Unknown]
  - Pneumonia [Unknown]
  - Urinary tract infection [Unknown]
  - Upper respiratory tract infection [Unknown]
  - Pneumonia [Unknown]
  - Urinary tract infection [Unknown]
  - Aphthous stomatitis [Unknown]
  - Leptotrichia infection [Unknown]
  - Candidiasis [Unknown]
  - Skin infection [Unknown]
  - Localised infection [Unknown]
  - Oral herpes [Unknown]
  - Herpes zoster [Unknown]
  - Fungal infection [Unknown]
  - Conjunctivitis [Unknown]
  - Lung infection [Unknown]
  - Haematoma infection [Unknown]
  - Sinusitis [Unknown]
  - Soft tissue infection [Unknown]
  - Upper respiratory tract infection [Unknown]
  - Injection site reaction [Unknown]
  - Lymphatic disorder [Unknown]
  - C-reactive protein increased [Unknown]
  - Iron overload [Unknown]
  - Blood lactate dehydrogenase increased [Unknown]
  - Bursitis [Unknown]
  - Nausea [Unknown]
  - Visual acuity reduced [Unknown]
  - Opportunistic infection [Unknown]
  - Abdominal pain [Unknown]
  - Proctalgia [Unknown]
  - Back pain [Unknown]
  - Dysphonia [Unknown]
  - Vomiting [Unknown]
  - Speech disorder [Unknown]
  - Hypertension [Unknown]
  - Rhinorrhoea [Unknown]
  - Pigmentation disorder [Unknown]
  - Hot flush [Unknown]
  - Back pain [Unknown]
  - Eye pain [Unknown]
  - Back pain [Unknown]
  - Arthralgia [Unknown]
  - Bone pain [Unknown]
  - Headache [Unknown]
  - Weight decreased [Unknown]
  - Injection site pain [Unknown]
  - Hyperhidrosis [Unknown]
  - Chest pain [Unknown]
